FAERS Safety Report 23398521 (Version 5)
Quarter: 2024Q2

REPORT INFORMATION
  Report Type: Spontaneous
  Country: CH (occurrence: CH)
  Receive Date: 20240112
  Receipt Date: 20240626
  Transmission Date: 20240716
  Serious: Yes (Other)
  Sender: FDA-Public Use
  Company Number: CH-002147023-NVSC2023CH262056

PATIENT
  Sex: Female

DRUGS (6)
  1. LUTATHERA [Suspect]
     Active Substance: LUTETIUM OXODOTREOTIDE LU-177
     Indication: Neuroendocrine tumour of the rectum
     Dosage: 7400 MBQ Q8W (FIRST DOSE)
     Route: 042
     Dates: start: 20200211
  2. LUTATHERA [Suspect]
     Active Substance: LUTETIUM OXODOTREOTIDE LU-177
     Indication: Metastases to liver
     Dosage: 7400 MBQ Q8W (SECOND DOSE)
     Route: 042
     Dates: start: 20200602
  3. LUTATHERA [Suspect]
     Active Substance: LUTETIUM OXODOTREOTIDE LU-177
     Indication: Metastases to lymph nodes
     Dosage: 7400 MBQ Q8W (THIRD DOSE)
     Route: 042
     Dates: start: 20200804
  4. LUTATHERA [Suspect]
     Active Substance: LUTETIUM OXODOTREOTIDE LU-177
     Indication: Metastases to bone
     Dosage: 7400 MBQ Q8W (FOURTH DOSE)
     Route: 042
     Dates: start: 20201109
  5. LUTATHERA [Suspect]
     Active Substance: LUTETIUM OXODOTREOTIDE LU-177
     Dosage: 7400 MBQ Q8W (FIFTH DOSE)
     Route: 042
     Dates: start: 20231024
  6. LUTATHERA [Suspect]
     Active Substance: LUTETIUM OXODOTREOTIDE LU-177
     Dosage: UNK (SEVENTH DOSE)
     Route: 065
     Dates: start: 20240220

REACTIONS (3)
  - Neuroendocrine tumour of the rectum [Recovering/Resolving]
  - Malignant neoplasm progression [Recovering/Resolving]
  - Off label use [Unknown]

NARRATIVE: CASE EVENT DATE: 20230821
